FAERS Safety Report 20770269 (Version 2)
Quarter: 2022Q2

REPORT INFORMATION
  Report Type: Spontaneous
  Country: PL (occurrence: PL)
  Receive Date: 20220429
  Receipt Date: 20220516
  Transmission Date: 20220721
  Serious: Yes (Other)
  Sender: FDA-Public Use
  Company Number: PL-WZFPOLFA-316185

PATIENT
  Age: 70 Year
  Sex: Male

DRUGS (7)
  1. DEXAMETHASONE [Suspect]
     Active Substance: DEXAMETHASONE
     Indication: Iridocyclitis
     Route: 061
  2. TROPICAMIDE [Concomitant]
     Active Substance: TROPICAMIDE
     Indication: Iridocyclitis
     Route: 061
  3. PHENYLEPHRINE [Concomitant]
     Active Substance: PHENYLEPHRINE HYDROCHLORIDE
     Indication: Iridocyclitis
     Route: 061
  4. DEXPANTHENOL [Concomitant]
     Active Substance: DEXPANTHENOL
     Indication: Iridocyclitis
     Route: 061
  5. LEVOFLOXACIN [Concomitant]
     Active Substance: LEVOFLOXACIN
     Indication: Infection prophylaxis
     Route: 061
  6. AMOXICILLIN\CLAVULANIC ACID [Concomitant]
     Active Substance: AMOXICILLIN\CLAVULANIC ACID
     Indication: Antibiotic therapy
  7. METRONIDAZOLE [Concomitant]
     Active Substance: METRONIDAZOLE
     Indication: Antibiotic therapy

REACTIONS (2)
  - Aspergillus infection [Recovered/Resolved]
  - Keratitis fungal [Recovered/Resolved]
